FAERS Safety Report 20045890 (Version 1)
Quarter: 2021Q4

REPORT INFORMATION
  Report Type: Spontaneous
  Country: US (occurrence: US)
  Receive Date: 20211108
  Receipt Date: 20211108
  Transmission Date: 20220304
  Serious: Yes (Other)
  Sender: FDA-Public Use
  Company Number: US-SUN PHARMACEUTICAL INDUSTRIES LTD-2021R1-316595

PATIENT
  Age: 37 Year
  Sex: Male

DRUGS (4)
  1. OLANZAPINE [Suspect]
     Active Substance: OLANZAPINE
     Indication: Schizoaffective disorder
     Dosage: UNK
     Route: 048
  2. OLANZAPINE [Suspect]
     Active Substance: OLANZAPINE
     Dosage: 10 MILLIGRAM, BID
     Route: 048
  3. OLANZAPINE [Suspect]
     Active Substance: OLANZAPINE
     Dosage: UNK (5 MG IN THE MORNING AND 15 MG IN THE EVENING)
     Route: 048
  4. PSYLLIUM [Interacting]
     Active Substance: PLANTAGO SEED
     Indication: Constipation
     Dosage: 3 GRAM, BID
     Route: 065

REACTIONS (3)
  - Drug interaction [Unknown]
  - Delusion [Recovering/Resolving]
  - Abnormal behaviour [Recovering/Resolving]
